FAERS Safety Report 4277607-8 (Version None)
Quarter: 2004Q1

REPORT INFORMATION
  Report Type: 
  Country: None (occurrence: None)
  Receive Date: 20040121
  Receipt Date: 20040109
  Transmission Date: 20041129
  Serious: Yes (Life-Threatening, Hospitalization)
  Sender: FDA-Public Use
  Company Number: US-SHR-04-019498

PATIENT
  Age: 39 Year
  Sex: Female

DRUGS (3)
  1. ULTRAVIST (PHARMACY BULK) [Suspect]
     Indication: COMPUTERISED TOMOGRAM
     Dosage: 150 ML, 1 DOSE, INTRAVENOUS
     Route: 042
     Dates: start: 20040107, end: 20040107
  2. ULTRAVIST (PHARMACY BULK) [Suspect]
  3. ANTIBIOTICS [Concomitant]

REACTIONS (8)
  - ANAPHYLACTOID REACTION [None]
  - CARDIO-RESPIRATORY ARREST [None]
  - COMA [None]
  - HYPOAESTHESIA [None]
  - PARAESTHESIA [None]
  - POST PROCEDURAL COMPLICATION [None]
  - SALIVARY HYPERSECRETION [None]
  - VOMITING [None]
